FAERS Safety Report 8291229 (Version 3)
Quarter: 2013Q2

REPORT INFORMATION
  Report Type: Spontaneous
  Country: US (occurrence: None)
  Receive Date: 20111122
  Receipt Date: 20120703
  Transmission Date: 20140414
  Serious: No
  Sender: FDA-Public Use
  Company Number: PHHY2011US47886

PATIENT
  Age: 47 Year
  Sex: Female

DRUGS (1)
  1. GILENYA [Suspect]
     Indication: MULTIPLE SCLEROSIS
     Dosage: 0.5 MG, QD, ORAL
     Route: 048
     Dates: start: 20110526

REACTIONS (5)
  - BLOOD PRESSURE FLUCTUATION [None]
  - Visual impairment [None]
  - Hypoaesthesia [None]
  - Visual acuity reduced [None]
  - White blood cell count decreased [None]
